FAERS Safety Report 17263640 (Version 1)
Quarter: 2020Q1

REPORT INFORMATION
  Report Type: Spontaneous
  Country: DE (occurrence: DE)
  Receive Date: 20200113
  Receipt Date: 20200113
  Transmission Date: 20200409
  Serious: Yes (Other)
  Sender: FDA-Public Use
  Company Number: DE-ASTRAZENECA-2020SE05088

PATIENT
  Age: 68 Year
  Sex: Male

DRUGS (4)
  1. THEOPHYLLINE [Concomitant]
     Active Substance: THEOPHYLLINE ANHYDROUS
  2. INHALED CORTICOSTEROIDS [Concomitant]
  3. MONTELUKAST [Concomitant]
     Active Substance: MONTELUKAST SODIUM
  4. ROFLUMILAST. [Suspect]
     Active Substance: ROFLUMILAST
     Route: 048

REACTIONS (3)
  - Condition aggravated [Unknown]
  - Infection [Unknown]
  - Secretion discharge [Unknown]
